FAERS Safety Report 17146265 (Version 2)
Quarter: 2020Q3

REPORT INFORMATION
  Report Type: Spontaneous
  Country: US (occurrence: US)
  Receive Date: 20191212
  Receipt Date: 20200713
  Transmission Date: 20201102
  Serious: Yes (Other)
  Sender: FDA-Public Use
  Company Number: US-ASTRAZENECA-2019SF75732

PATIENT
  Age: 49 Year
  Sex: Male
  Weight: 106.6 kg

DRUGS (54)
  1. AZITHROMYCIN ANHYDROUS. [Concomitant]
     Active Substance: AZITHROMYCIN ANHYDROUS
  2. CARVEDILOL. [Concomitant]
     Active Substance: CARVEDILOL
  3. NITROSTAT [Concomitant]
     Active Substance: NITROGLYCERIN
  4. NITROGLYCERINE [Concomitant]
     Active Substance: NITROGLYCERIN
  5. NEXIUM [Suspect]
     Active Substance: ESOMEPRAZOLE MAGNESIUM
     Indication: GASTROOESOPHAGEAL REFLUX DISEASE
     Route: 048
     Dates: start: 200612, end: 201801
  6. LEXAPRO [Concomitant]
     Active Substance: ESCITALOPRAM OXALATE
  7. TRIAMTERENE?HCTZ [Concomitant]
     Active Substance: HYDROCHLOROTHIAZIDE\TRIAMTERENE
  8. CIPROFLOXACIN HCL [Concomitant]
     Active Substance: CIPROFLOXACIN HYDROCHLORIDE
  9. PROAIR HFA [Concomitant]
     Active Substance: ALBUTEROL SULFATE
  10. CEFDINIR. [Concomitant]
     Active Substance: CEFDINIR
  11. CIPROFLOXACIN. [Concomitant]
     Active Substance: CIPROFLOXACIN
  12. TRAMADOL. [Concomitant]
     Active Substance: TRAMADOL
  13. ROSUVASTATIN. [Concomitant]
     Active Substance: ROSUVASTATIN
     Indication: BLOOD CHOLESTEROL INCREASED
     Dates: start: 2016
  14. LISINOPRIL. [Concomitant]
     Active Substance: LISINOPRIL
     Indication: HYPERTENSION
     Dates: start: 2014, end: 2016
  15. ASPIRIN. [Concomitant]
     Active Substance: ASPIRIN
     Indication: CARDIAC DISORDER
  16. AMLODIPINE BESYLATE. [Concomitant]
     Active Substance: AMLODIPINE BESYLATE
  17. GUAIFENESIN?CODEINE [Concomitant]
  18. TRILIPIX [Concomitant]
     Active Substance: FENOFIBRIC ACID
  19. FUROSEMIDE. [Concomitant]
     Active Substance: FUROSEMIDE
  20. TAMIFLU [Concomitant]
     Active Substance: OSELTAMIVIR PHOSPHATE
  21. SPIRONOLACTONE. [Concomitant]
     Active Substance: SPIRONOLACTONE
  22. METAMUCIL [Concomitant]
     Active Substance: PLANTAGO SEED
  23. CARTIA XT [Concomitant]
     Active Substance: DILTIAZEM HYDROCHLORIDE
  24. SULFAMETHOXAZOLE [Concomitant]
     Active Substance: SULFAMETHOXAZOLE
  25. SIMVASTATIN. [Concomitant]
     Active Substance: SIMVASTATIN
  26. PROCTOFOAM [Concomitant]
     Active Substance: PRAMOXINE HYDROCHLORIDE
  27. HYDROCHLOROTHIAZIDE. [Concomitant]
     Active Substance: HYDROCHLOROTHIAZIDE
     Indication: DIURETIC THERAPY
     Dates: start: 2013, end: 2016
  28. ZANTAC [Concomitant]
     Active Substance: RANITIDINE HYDROCHLORIDE
  29. FENOFIBRATE. [Concomitant]
     Active Substance: FENOFIBRATE
  30. HYDROXYZINE HCL [Concomitant]
     Active Substance: HYDROXYZINE HYDROCHLORIDE
  31. SUCRALFATE. [Concomitant]
     Active Substance: SUCRALFATE
  32. METOPROLOL TARTRATE. [Concomitant]
     Active Substance: METOPROLOL TARTRATE
  33. BYSTOLIC [Concomitant]
     Active Substance: NEBIVOLOL HYDROCHLORIDE
  34. LEVOFLOXACIN. [Concomitant]
     Active Substance: LEVOFLOXACIN
  35. METRONIDAZOLE. [Concomitant]
     Active Substance: METRONIDAZOLE
  36. METHYLPREDNISOLONE. [Concomitant]
     Active Substance: METHYLPREDNISOLONE
  37. VITAMIN D2 [Concomitant]
     Active Substance: ERGOCALCIFEROL
  38. DUEXIS [Concomitant]
     Active Substance: FAMOTIDINE\IBUPROFEN
  39. ALPRAZOLAM. [Concomitant]
     Active Substance: ALPRAZOLAM
  40. OMEPRAZOLE. [Concomitant]
     Active Substance: OMEPRAZOLE
  41. FLUZONE [Concomitant]
     Active Substance: INFLUENZA A VIRUS A/CALIFORNIA/7/2009 X-179A (H1N1) ANTIGEN (FORMALDEHYDE INACTIVATED)\INFLUENZA A VIRUS A/VICTORIA/210/2009 X-187 (H3N2) ANTIGEN (FORMALDEHYDE INACTIVATED)\INFLUENZA B VIRUS B/BRISBANE/60/2008 ANTIGEN (FORMALDEHYDE INACTIVATED)
  42. LESCOL [Concomitant]
     Active Substance: FLUVASTATIN SODIUM
  43. PRAVASTATIN SODIUM. [Concomitant]
     Active Substance: PRAVASTATIN SODIUM
  44. LOVASTATIN. [Concomitant]
     Active Substance: LOVASTATIN
  45. NEXIUM [Suspect]
     Active Substance: ESOMEPRAZOLE MAGNESIUM
     Indication: GASTROOESOPHAGEAL REFLUX DISEASE
     Dosage: 40.0MG UNKNOWN
     Route: 048
     Dates: start: 2012, end: 2014
  46. NEXIUM [Suspect]
     Active Substance: ESOMEPRAZOLE MAGNESIUM
     Indication: GASTROOESOPHAGEAL REFLUX DISEASE
     Dosage: 40.0MG UNKNOWN
     Route: 048
     Dates: start: 20120529
  47. METANX [Concomitant]
     Active Substance: LEVOMEFOLATE CALCIUM\METHYLCOBALAMIN\PYRIDOXAL PHOSPHATE ANHYDROUS
  48. DIOVAN [Concomitant]
     Active Substance: VALSARTAN
  49. CRESTOR [Concomitant]
     Active Substance: ROSUVASTATIN CALCIUM
  50. LYRICA [Concomitant]
     Active Substance: PREGABALIN
  51. CLARITHROMYCIN. [Concomitant]
     Active Substance: CLARITHROMYCIN
  52. CHERATUSSIN [Concomitant]
     Active Substance: AMMONIUM CHLORIDE\DEXTROMETHORPHAN\SODIUM CITRATE
  53. CHLORZOXAZONE. [Concomitant]
     Active Substance: CHLORZOXAZONE
  54. DICYCLOMINE [Concomitant]
     Active Substance: DICYCLOMINE HYDROCHLORIDE

REACTIONS (2)
  - Chronic kidney disease [Not Recovered/Not Resolved]
  - Renal failure [Unknown]

NARRATIVE: CASE EVENT DATE: 2013
